FAERS Safety Report 4363599-X (Version None)
Quarter: 2004Q2

REPORT INFORMATION
  Report Type: 
  Country: None (occurrence: None)
  Receive Date: 20040518
  Receipt Date: 20040510
  Transmission Date: 20050107
  Serious: Yes (Hospitalization)
  Sender: FDA-Public Use
  Company Number: 200410460BVD

PATIENT
  Age: 25 Year
  Sex: Female
  Weight: 68 kg

DRUGS (1)
  1. AVELOX [Suspect]
     Indication: ACUTE TONSILLITIS
     Dosage: 400  MG, TOTAL DAILY, ORAL
     Route: 048
     Dates: start: 20031006, end: 20031007

REACTIONS (3)
  - ENDOCARDITIS [None]
  - HYPOKALAEMIA [None]
  - VENTRICULAR EXTRASYSTOLES [None]
